FAERS Safety Report 16268743 (Version 2)
Quarter: 2019Q2

REPORT INFORMATION
  Report Type: Report from Study
  Country: CA (occurrence: CA)
  Receive Date: 20190503
  Receipt Date: 20190509
  Transmission Date: 20190711
  Serious: Yes (Death)
  Sender: FDA-Public Use
  Company Number: CA-TOLMAR, INC.-2019CA004336

PATIENT

DRUGS (1)
  1. ELIGARD [Suspect]
     Active Substance: LEUPROLIDE ACETATE
     Indication: PROSTATE CANCER
     Dosage: 30 MG, EVERY 4 MONTHS
     Route: 058
     Dates: start: 20161215

REACTIONS (4)
  - Musculoskeletal pain [Unknown]
  - General physical health deterioration [Unknown]
  - Oedema peripheral [Unknown]
  - Prostate cancer [Fatal]
